FAERS Safety Report 6962503-5 (Version None)
Quarter: 2010Q3

REPORT INFORMATION
  Report Type: 
  Country: None (occurrence: None)
  Receive Date: 20100902
  Receipt Date: 20100826
  Transmission Date: 20110219
  Serious: Yes (Other)
  Sender: FDA-Public Use
  Company Number: ES-JNJFOC-20081005269

PATIENT
  Age: 38 Year
  Sex: Male

DRUGS (8)
  1. ITRACONAZOLE [Suspect]
     Indication: ACUTE PROMYELOCYTIC LEUKAEMIA
     Route: 065
  2. TRETINOIN [Interacting]
     Indication: ACUTE PROMYELOCYTIC LEUKAEMIA
     Route: 065
  3. COTRIM [Concomitant]
     Indication: ACUTE PROMYELOCYTIC LEUKAEMIA
     Route: 065
  4. ACYCLOVIR SODIUM [Concomitant]
     Indication: ACUTE PROMYELOCYTIC LEUKAEMIA
     Route: 065
  5. IDARUBICIN HCL [Concomitant]
     Indication: ACUTE PROMYELOCYTIC LEUKAEMIA
     Route: 065
  6. OMEPRAZOLE [Concomitant]
     Route: 065
  7. LORAZEPAM [Concomitant]
     Route: 065
  8. METOCLOPRAMIDE [Concomitant]
     Route: 065

REACTIONS (4)
  - DRUG INTERACTION [None]
  - HYPERCALCAEMIA [None]
  - RENAL FAILURE ACUTE [None]
  - RETINOIC ACID SYNDROME [None]
